FAERS Safety Report 4349808-1 (Version None)
Quarter: 2004Q2

REPORT INFORMATION
  Report Type: 
  Country: None (occurrence: None)
  Receive Date: 20040426
  Receipt Date: 20040409
  Transmission Date: 20050107
  Serious: Yes (Life-Threatening, Hospitalization)
  Sender: FDA-Public Use
  Company Number: 205828

PATIENT
  Age: 8 Year
  Sex: Male
  Weight: 19.5 kg

DRUGS (1)
  1. NUTROPIN AQ [Suspect]
     Indication: MEDULLOBLASTOMA
     Dosage: 0.5 MG, QD
     Dates: start: 20030801, end: 20040319

REACTIONS (5)
  - HYDRONEPHROSIS [None]
  - MEDULLOBLASTOMA [None]
  - METASTASES TO SPINE [None]
  - PELVIC MASS [None]
  - RECURRENT CANCER [None]
